FAERS Safety Report 24437096 (Version 1)
Quarter: 2024Q4

REPORT INFORMATION
  Report Type: Other
  Country: IR (occurrence: IR)
  Receive Date: 20241015
  Receipt Date: 20241015
  Transmission Date: 20250115
  Serious: Yes (Life-Threatening, Hospitalization, Other)
  Sender: CAPLIN STERILES LIMITED
  Company Number: IR-Caplin Steriles Limited-2163055

PATIENT
  Age: 6 Year
  Sex: Female
  Weight: 20 kg

DRUGS (1)
  1. TRANEXAMIC ACID [Suspect]
     Active Substance: TRANEXAMIC ACID
     Indication: Pharyngeal haemorrhage

REACTIONS (1)
  - Anaphylactic shock [Recovering/Resolving]
